FAERS Safety Report 8560283-3 (Version None)
Quarter: 2012Q3

REPORT INFORMATION
  Report Type: 
  Country: None (occurrence: None)
  Receive Date: 20120802
  Receipt Date: 20120726
  Transmission Date: 20120928
  Serious: Yes (Hospitalization, Other)
  Sender: FDA-Public Use
  Company Number: SE-AMGEN-SWECT2012039846

PATIENT
  Age: 78 Year
  Sex: Female

DRUGS (2)
  1. DENOSUMAB [Suspect]
     Indication: OSTEOPOROSIS POSTMENOPAUSAL
     Dosage: 1 ML, QMO
     Route: 058
     Dates: start: 20071207
  2. KALCIPOS-D [Concomitant]

REACTIONS (1)
  - SPINAL COLUMN STENOSIS [None]
